FAERS Safety Report 5605278-4 (Version None)
Quarter: 2008Q1

REPORT INFORMATION
  Report Type: 
  Country: None (occurrence: None)
  Receive Date: 20080129
  Receipt Date: 20080116
  Transmission Date: 20080703
  Serious: Yes (Hospitalization, Other)
  Sender: FDA-Public Use
  Company Number: US-PFIZER INC-2008005277

PATIENT
  Sex: Male

DRUGS (3)
  1. XANAX [Suspect]
     Indication: NERVE COMPRESSION
  2. LYRICA [Suspect]
  3. LORTAB [Suspect]

REACTIONS (5)
  - AMNESIA [None]
  - DRUG ABUSE [None]
  - ILL-DEFINED DISORDER [None]
  - NECK PAIN [None]
  - PAIN IN EXTREMITY [None]
